FAERS Safety Report 9028322 (Version 1)
Quarter: 2013Q1

REPORT INFORMATION
  Report Type: Spontaneous
  Country: US (occurrence: US)
  Receive Date: 20130124
  Receipt Date: 20130124
  Transmission Date: 20140127
  Serious: No
  Sender: FDA-Public Use
  Company Number: US-BAUSCH-BL-2012-000602

PATIENT
  Age: 55 Year
  Sex: Female
  Weight: 63.56 kg

DRUGS (1)
  1. ALAWAY [Suspect]
     Route: 047

REACTIONS (1)
  - Burning sensation [Recovered/Resolved]
